FAERS Safety Report 4887098-1 (Version None)
Quarter: 2006Q1

REPORT INFORMATION
  Report Type: 
  Country: None (occurrence: None)
  Receive Date: 20060118
  Receipt Date: 20051123
  Transmission Date: 20060701
  Serious: Yes (Hospitalization, Other)
  Sender: FDA-Public Use
  Company Number: 2005BI018690

PATIENT
  Age: 59 Year
  Sex: Female
  Weight: 61.2356 kg

DRUGS (6)
  1. AVONEX [Suspect]
     Indication: MULTIPLE SCLEROSIS
     Dosage: 30 UG; QW; IM
     Route: 030
     Dates: start: 20031020
  2. DILANTIN [Concomitant]
  3. BACLOFEN [Concomitant]
  4. DUONEB [Concomitant]
  5. PRILOSEC OTC [Concomitant]
  6. DITROPAN XL [Concomitant]

REACTIONS (7)
  - CEREBROVASCULAR ACCIDENT [None]
  - CHILLS [None]
  - DYSPNOEA [None]
  - FALL [None]
  - INCREASED TENDENCY TO BRUISE [None]
  - MOVEMENT DISORDER [None]
  - PNEUMONIA [None]
